FAERS Safety Report 9761479 (Version 2)
Quarter: 2014Q1

REPORT INFORMATION
  Report Type: Report from Study
  Country: US (occurrence: US)
  Receive Date: 20131216
  Receipt Date: 20140114
  Transmission Date: 20141002
  Serious: Yes (Hospitalization, Other)
  Sender: FDA-Public Use
  Company Number: US-US-EMD SERONO, INC.-7256683

PATIENT
  Age: 42 Year
  Sex: Female

DRUGS (1)
  1. REBIF [Suspect]
     Indication: PRODUCT USED FOR UNKNOWN INDICATION
     Route: 058
     Dates: start: 20110921

REACTIONS (4)
  - Myocardial infarction [Recovering/Resolving]
  - Coronary artery disease [Unknown]
  - Injection site reaction [Recovering/Resolving]
  - Injection site bruising [Not Recovered/Not Resolved]
